FAERS Safety Report 21601112 (Version 1)
Quarter: 2022Q4

REPORT INFORMATION
  Report Type: Spontaneous
  Country: ES (occurrence: ES)
  Receive Date: 20221116
  Receipt Date: 20221116
  Transmission Date: 20230113
  Serious: Yes (Other)
  Sender: FDA-Public Use
  Company Number: None

PATIENT
  Age: 54 Year
  Sex: Male

DRUGS (6)
  1. RINVOQ [Suspect]
     Active Substance: UPADACITINIB
     Indication: Ankylosing spondylitis
     Dosage: 15 MG/24 H, 15 MG COMPRIMIDOS DE LIBERACION PROLONGADA, 28 COMPRIMIDOS
     Route: 048
     Dates: start: 20220928, end: 20221103
  2. MIRTAZAPINE [Concomitant]
     Active Substance: MIRTAZAPINE
     Indication: Insomnia
     Dosage: 15 MG 30 COMPRIMIDOS
     Route: 048
     Dates: start: 20220207
  3. CALCIFEDIOL [Concomitant]
     Active Substance: CALCIFEDIOL
     Indication: Vitamin D decreased
     Dosage: 0,266 MG CAPSULAS BLANDAS ,10 C?PSULAS (BLISTER PVC/PVDC-ALUMINIO)
     Route: 048
     Dates: start: 20210409
  4. LYRICA [Concomitant]
     Active Substance: PREGABALIN
     Indication: Fibromyalgia
     Dosage: 75 MG CAPSULAS DURAS
     Route: 048
     Dates: start: 20220209
  5. Naproxen / Esomeprazole [Concomitant]
     Indication: Tendonitis
     Dosage: 500 MG/20 MG 60 COMPRIMIDOS LIBERACI?N MODIFICADA
     Route: 048
     Dates: start: 20151109
  6. LORAZEPAM [Concomitant]
     Active Substance: LORAZEPAM
     Indication: Insomnia
     Dosage: 1 MG 50 COMPRIMIDOS
     Route: 048
     Dates: start: 20220209

REACTIONS (4)
  - Hyperlipidaemia [Unknown]
  - Oral discomfort [Recovering/Resolving]
  - Hypercholesterolaemia [Unknown]
  - Hypertriglyceridaemia [Unknown]

NARRATIVE: CASE EVENT DATE: 20221001
